FAERS Safety Report 7141689-6 (Version None)
Quarter: 2010Q4

REPORT INFORMATION
  Report Type: 
  Country: None (occurrence: None)
  Receive Date: 20101207
  Receipt Date: 20101201
  Transmission Date: 20110411
  Serious: Yes (Death)
  Sender: FDA-Public Use
  Company Number: PHHY2010JP80441

PATIENT
  Age: 71 Year
  Sex: Female

DRUGS (10)
  1. NEORAL [Suspect]
     Indication: INTERSTITIAL LUNG DISEASE
     Dosage: 100 MG
     Route: 048
     Dates: end: 20090416
  2. PARIET [Concomitant]
     Route: 048
  3. BAKTAR [Concomitant]
     Route: 048
  4. SELBEX [Concomitant]
     Route: 048
  5. NORVASC [Concomitant]
     Route: 048
  6. MAGLAX [Concomitant]
     Route: 048
  7. CELECOXIB [Concomitant]
     Route: 048
  8. STEROIDS NOS [Concomitant]
     Dosage: 25 MG DAILY
  9. ANTIBIOTICS [Concomitant]
  10. ANTIFUNGAL DRUGS [Concomitant]

REACTIONS (4)
  - ACUTE RESPIRATORY DISTRESS SYNDROME [None]
  - ASPERGILLOSIS [None]
  - DIFFUSE ALVEOLAR DAMAGE [None]
  - SEPTIC EMBOLUS [None]
